FAERS Safety Report 9936758 (Version 2)
Quarter: 2014Q1

REPORT INFORMATION
  Report Type: Spontaneous
  Country: US (occurrence: None)
  Receive Date: 20140107
  Receipt Date: 20140107
  Transmission Date: 20141002
  Serious: Yes (Other)
  Sender: FDA-Public Use
  Company Number: 2012AP000414

PATIENT
  Age: 70 Year
  Sex: Female

DRUGS (3)
  1. LATANOPROST OPHTHALMIC SOLUTION 0.005% [Suspect]
     Indication: GLAUCOMA
     Route: 047
     Dates: start: 20110927, end: 20120123
  2. AZOPT [Suspect]
     Indication: PRODUCT USED FOR UNKNOWN INDICATION
     Route: 047
     Dates: start: 20120215
  3. BIMATOPROST [Concomitant]

REACTIONS (3)
  - Eye irritation [None]
  - Lacrimation increased [None]
  - Conjunctivitis bacterial [None]
